FAERS Safety Report 6612605-8 (Version None)
Quarter: 2010Q1

REPORT INFORMATION
  Report Type: 
  Country: None (occurrence: None)
  Receive Date: 20100303
  Receipt Date: 20100219
  Transmission Date: 20100710
  Serious: Yes (Other)
  Sender: FDA-Public Use
  Company Number: US-PFIZER INC-2010022856

PATIENT
  Sex: Female
  Weight: 124.72 kg

DRUGS (6)
  1. ZOLOFT [Suspect]
     Indication: ATTENTION DEFICIT/HYPERACTIVITY DISORDER
     Dosage: 200 MG, 1X/DAY
     Dates: start: 20080101
  2. ZOLOFT [Suspect]
     Indication: BIPOLAR DISORDER
  3. ZOLOFT [Suspect]
     Indication: DEPRESSION
  4. ZOLOFT [Suspect]
     Indication: ANXIETY
  5. KLONOPIN [Concomitant]
     Dosage: UNK
  6. AMBIEN [Concomitant]
     Dosage: UNK

REACTIONS (7)
  - ANAEMIA [None]
  - CRYING [None]
  - FEELING JITTERY [None]
  - MENTAL DISORDER [None]
  - NERVOUSNESS [None]
  - PARAESTHESIA [None]
  - WEIGHT FLUCTUATION [None]
